FAERS Safety Report 6171690-0 (Version None)
Quarter: 2009Q2

REPORT INFORMATION
  Report Type: 
  Country: None (occurrence: None)
  Receive Date: 20090427
  Receipt Date: 20090427
  Transmission Date: 20091009
  Serious: Yes (Other)
  Sender: FDA-Public Use
  Company Number: None

PATIENT

DRUGS (2)
  1. SUCCINYLCHOLINE CHLORIDE [Suspect]
     Indication: PARALYSIS
     Dates: start: 20090410, end: 20090410
  2. SUCCINYLCHOLINE CHLORIDE [Suspect]
     Indication: PREOPERATIVE CARE
     Dates: start: 20090410, end: 20090410

REACTIONS (1)
  - DRUG INEFFECTIVE [None]
